FAERS Safety Report 9564096 (Version 2)
Quarter: 2013Q4

REPORT INFORMATION
  Report Type: Report from Study
  Country: JP (occurrence: JP)
  Receive Date: 20130929
  Receipt Date: 20131011
  Transmission Date: 20140711
  Serious: Yes (Death, Other)
  Sender: FDA-Public Use
  Company Number: JP-OTSUKA-JP-2013-14060

PATIENT
  Age: 86 Year
  Sex: Female
  Weight: 45 kg

DRUGS (24)
  1. SAMSCA [Suspect]
     Indication: FLUID RETENTION
     Dosage: 7.5 MG MILLIGRAM(S), QAM
     Route: 048
     Dates: start: 20130328, end: 20130330
  2. ALOSENN [Concomitant]
     Dosage: 0.5 G GRAM(S), DAILY DOSE
     Route: 048
     Dates: end: 20130320
  3. MICARDIS [Concomitant]
     Dosage: 10 MG MILLIGRAM(S), DAILY DOSE
     Route: 048
     Dates: end: 20130320
  4. CINAL [Concomitant]
     Dosage: 3 DF DOSAGE FORM, DAILY DOSE
     Route: 048
     Dates: end: 20130330
  5. ARTIST [Concomitant]
     Dosage: 5 MG MILLIGRAM(S), DAILY DOSE
     Route: 048
     Dates: end: 20130301
  6. ARTIST [Concomitant]
     Dosage: 2.5 MG MILLIGRAM(S), DAILY DOSE
     Route: 048
     Dates: start: 20130302, end: 20130331
  7. ALDACTONE A [Concomitant]
     Dosage: 25 MG MILLIGRAM(S), DAILY DOSE
     Route: 048
     Dates: end: 20130331
  8. METHYCOBAL [Concomitant]
     Dosage: 750 MCG, DAILY DOSE
     Route: 048
     Dates: end: 20130331
  9. JUVELA N [Concomitant]
     Dosage: 600 MG MILLIGRAM(S), DAILY DOSE
     Route: 048
     Dates: end: 20130331
  10. SELBEX [Concomitant]
     Dosage: 150 MG MILLIGRAM(S), DAILY DOSE
     Route: 048
     Dates: end: 20130331
  11. LOXONIN [Concomitant]
     Dosage: 180 MG MILLIGRAM(S), DAILY DOSE
     Route: 048
     Dates: end: 20130331
  12. FUROSEMIDE [Concomitant]
     Indication: CARDIAC FAILURE
     Dosage: 20 MG MILLIGRAM(S), DAILY DOSE
     Route: 048
     Dates: end: 20130325
  13. RISUMIC [Concomitant]
     Dosage: 10 MG MILLIGRAM(S), DAILY DOSE
     Route: 048
     Dates: start: 20130306, end: 20130320
  14. RENIVACE [Concomitant]
     Dosage: 2.5 MG MILLIGRAM(S), DAILY DOSE
     Route: 048
     Dates: start: 20130306, end: 20130320
  15. BROTIZOLAM M [Concomitant]
     Dosage: 0.25 MG MILLIGRAM(S), DAILY DOSE
     Route: 048
     Dates: start: 20130323, end: 20130324
  16. PURSENNID [Concomitant]
     Dosage: 12 MG MILLIGRAM(S), DAILY DOSE
     Route: 048
     Dates: start: 20130323, end: 20130329
  17. FUROSEMIDE [Concomitant]
     Indication: CARDIAC FAILURE
     Dosage: 40 MG MILLIGRAM(S), DAILY DOSE
     Route: 042
     Dates: start: 20130326
  18. GLUCOSE [Concomitant]
     Dosage: 500 ML MILLILITRE(S), DAILY DOSE
     Route: 041
     Dates: start: 20130321, end: 20130328
  19. DOBUPUM [Concomitant]
     Dosage: 50 ML MILLILITRE(S), DAILY DOSE
     Route: 041
     Dates: start: 20130321, end: 20130325
  20. DOBUPUM [Concomitant]
     Dosage: 100 ML MILLILITRE(S), DAILY DOSE
     Route: 041
     Dates: start: 20130326, end: 20130329
  21. DOBUPUM [Concomitant]
     Dosage: 75 ML MILLILITRE(S), DAILY DOSE
     Route: 041
     Dates: start: 20130330
  22. VASOLAN [Concomitant]
     Dosage: 5 MG MILLIGRAM(S), DAILY DOSE
     Route: 042
     Dates: start: 20130326, end: 20130326
  23. HANP [Concomitant]
     Dosage: 1000 MCG, DAILY DOSE
     Route: 041
     Dates: start: 20130326, end: 20130330
  24. PHYSIO [Concomitant]
     Indication: PROPHYLAXIS
     Dosage: 500 ML MILLILITRE(S), DAILY DOSE
     Route: 041
     Dates: start: 20130329

REACTIONS (4)
  - Arrhythmia [Unknown]
  - Cardiac arrest [Recovered/Resolved]
  - Bradycardia [Unknown]
  - Circulatory collapse [Fatal]
